FAERS Safety Report 10930190 (Version 1)
Quarter: 2015Q1

REPORT INFORMATION
  Report Type: Spontaneous
  Country: US (occurrence: US)
  Receive Date: 20150319
  Receipt Date: 20150319
  Transmission Date: 20150721
  Serious: No
  Sender: FDA-Public Use
  Company Number: US-PFIZER INC-2015092222

PATIENT
  Age: 60 Year
  Sex: Female
  Weight: 72 kg

DRUGS (13)
  1. LYRICA [Suspect]
     Active Substance: PREGABALIN
     Indication: INTERVERTEBRAL DISC PROTRUSION
  2. LIPITOR [Concomitant]
     Active Substance: ATORVASTATIN CALCIUM
     Indication: BLOOD CHOLESTEROL
     Dosage: 40 MG, DAILY
  3. CARVEDILOL. [Concomitant]
     Active Substance: CARVEDILOL
     Indication: HYPERTENSION
     Dosage: 3.125 MG, 2X/DAY
  4. AMLODIPINE BESYLATE. [Concomitant]
     Active Substance: AMLODIPINE BESYLATE
     Indication: BLOOD PRESSURE
     Dosage: 10 MG, 1X/DAY
  5. LYRICA [Suspect]
     Active Substance: PREGABALIN
     Indication: NERVE INJURY
  6. LYRICA [Suspect]
     Active Substance: PREGABALIN
     Indication: SPINAL CORD INJURY
  7. SYNTHROID [Concomitant]
     Active Substance: LEVOTHYROXINE SODIUM
     Indication: THYROID DISORDER
     Dosage: 112 ?G, 1X/DAY
  8. BENICAR [Concomitant]
     Active Substance: OLMESARTAN MEDOXOMIL
     Indication: BLOOD PRESSURE
     Dosage: 40 MG, DAILY
  9. OMEPRAZOLE. [Concomitant]
     Active Substance: OMEPRAZOLE
     Indication: GASTROOESOPHAGEAL REFLUX DISEASE
     Dosage: 20 MG, DAILY
  10. PERCOCET [Concomitant]
     Active Substance: ACETAMINOPHEN\OXYCODONE HYDROCHLORIDE
     Indication: PAIN
     Dosage: 10/325, 3X/DAY AS NEEDED
  11. LYRICA [Suspect]
     Active Substance: PREGABALIN
     Indication: MYALGIA
     Dosage: 75 MG, 2X/DAY
     Dates: start: 20150310
  12. LYRICA [Suspect]
     Active Substance: PREGABALIN
     Indication: NEURALGIA
  13. HYDROCHLOROTHIAZIDE. [Concomitant]
     Active Substance: HYDROCHLOROTHIAZIDE
     Indication: FLUID RETENTION
     Dosage: 25 MG, 1X/DAY

REACTIONS (1)
  - Drug ineffective [Recovering/Resolving]

NARRATIVE: CASE EVENT DATE: 20150310
